FAERS Safety Report 10579278 (Version 1)
Quarter: 2014Q4

REPORT INFORMATION
  Report Type: Spontaneous
  Country: US (occurrence: US)
  Receive Date: 20141112
  Receipt Date: 20141112
  Transmission Date: 20150529
  Serious: No
  Sender: FDA-Public Use
  Company Number: US-ASTRAZENECA-2014SE78162

PATIENT
  Age: 12206 Day
  Sex: Male

DRUGS (5)
  1. CALCIUM [Concomitant]
     Active Substance: CALCIUM
     Route: 065
  2. NEXIUM [Suspect]
     Active Substance: ESOMEPRAZOLE MAGNESIUM
     Indication: DYSPNOEA
     Route: 048
     Dates: start: 2011
  3. IRON [Concomitant]
     Active Substance: IRON
     Route: 065
  4. VITAMINS [Concomitant]
     Active Substance: VITAMINS
     Route: 065
  5. NEXIUM [Concomitant]
     Active Substance: ESOMEPRAZOLE MAGNESIUM
     Indication: DYSPNOEA
     Dates: start: 2014

REACTIONS (8)
  - Gait disturbance [Recovered/Resolved]
  - Dyspnoea [Unknown]
  - Adverse event [Unknown]
  - Abdominal pain [Recovered/Resolved]
  - Salivary hypersecretion [Unknown]
  - Dysphagia [Unknown]
  - Chest discomfort [Recovered/Resolved]
  - Off label use [Unknown]

NARRATIVE: CASE EVENT DATE: 201408
